FAERS Safety Report 9017536 (Version 2)
Quarter: 2013Q1

REPORT INFORMATION
  Report Type: Spontaneous
  Country: US (occurrence: US)
  Receive Date: 20130117
  Receipt Date: 20130301
  Transmission Date: 20140127
  Serious: Yes (Other)
  Sender: FDA-Public Use
  Company Number: US-MYLANLABS-2013S1001039

PATIENT
  Age: 57 Year
  Sex: Male
  Weight: 131.54 kg

DRUGS (6)
  1. INDOMETHACIN [Suspect]
     Indication: GOUT
     Route: 048
     Dates: start: 20121030, end: 20121103
  2. ALLOPURINOL [Suspect]
     Indication: GOUT
     Route: 048
     Dates: start: 20121030, end: 20121102
  3. IBUPROFEN [Concomitant]
     Indication: GOUT
     Route: 048
  4. NORVASC [Concomitant]
     Indication: BLOOD PRESSURE INCREASED
     Route: 048
  5. ACCUPRIL [Concomitant]
     Indication: BLOOD PRESSURE INCREASED
     Route: 048
  6. VICODIN [Concomitant]
     Indication: GOUT
     Route: 048
     Dates: start: 201212

REACTIONS (5)
  - Swelling face [Recovered/Resolved]
  - Swollen tongue [Recovered/Resolved]
  - Lip swelling [Recovered/Resolved]
  - Eye swelling [Recovered/Resolved]
  - Inflammation [Not Recovered/Not Resolved]
